FAERS Safety Report 16986001 (Version 1)
Quarter: 2019Q4

REPORT INFORMATION
  Report Type: Spontaneous
  Country: US (occurrence: US)
  Receive Date: 20191031
  Receipt Date: 20191031
  Transmission Date: 20200122
  Serious: Yes (Other)
  Sender: FDA-Public Use
  Company Number: None

PATIENT
  Age: 20 Year
  Sex: Male
  Weight: 54.45 kg

DRUGS (8)
  1. ENTYVIO [Suspect]
     Active Substance: VEDOLIZUMAB
     Indication: COLITIS ULCERATIVE
     Dates: start: 20181123, end: 20191011
  2. HUMALOG BASAGLAR [Concomitant]
  3. VITAMIN C [Concomitant]
     Active Substance: ASCORBIC ACID
  4. CYCLOPENTOLAT HYDROCHLORIDE [Concomitant]
  5. PREDISONE ACETATE [Concomitant]
  6. MULTIVITAMIN [Concomitant]
     Active Substance: VITAMINS
  7. MINOCYCLINE HCL ER [Concomitant]
  8. OMEGA 3 IRON (FLORADIX) [Concomitant]

REACTIONS (1)
  - Uveitis [None]

NARRATIVE: CASE EVENT DATE: 20191017
